FAERS Safety Report 20768820 (Version 2)
Quarter: 2022Q2

REPORT INFORMATION
  Report Type: Spontaneous
  Country: SI (occurrence: SI)
  Receive Date: 20220429
  Receipt Date: 20220502
  Transmission Date: 20220721
  Serious: Yes (Hospitalization, Other)
  Sender: FDA-Public Use
  Company Number: SI-MLMSERVICE-20220413-3500488-1

PATIENT
  Age: 55 Year
  Sex: Female

DRUGS (13)
  1. TIANEPTINE SODIUM [Suspect]
     Active Substance: TIANEPTINE SODIUM
     Indication: Generalised anxiety disorder
     Dosage: UNK
     Route: 065
  2. BUPROPION [Suspect]
     Active Substance: BUPROPION
     Indication: Generalised anxiety disorder
     Dosage: UNK
     Route: 065
  3. SERTRALINE [Suspect]
     Active Substance: SERTRALINE HYDROCHLORIDE
     Indication: Generalised anxiety disorder
     Dosage: UNK
     Route: 065
  4. PREGABALIN [Suspect]
     Active Substance: PREGABALIN
     Indication: Generalised anxiety disorder
     Dosage: UNK (GRADUALLY INCREASE)
     Route: 048
  5. PREGABALIN [Suspect]
     Active Substance: PREGABALIN
     Dosage: 300 MILLIGRAM, QD (2X150 MG)
     Route: 048
  6. PREGABALIN [Suspect]
     Active Substance: PREGABALIN
     Dosage: 25 MILLIGRAM (UP TO 2X PER DAY)
     Route: 048
  7. PREGABALIN [Suspect]
     Active Substance: PREGABALIN
     Dosage: UNK (GRADUALLY REDUCE)
     Route: 048
  8. PREGABALIN [Suspect]
     Active Substance: PREGABALIN
     Dosage: 150 MILLIGRAM, QD (3X50 MG DAILY)
     Route: 048
  9. PREGABALIN [Suspect]
     Active Substance: PREGABALIN
     Dosage: UNK (THE WOMAN SOMETIMES TOOK HIGHER DOSAGE OF PREGABALIN THAN PRESCRIBED)
     Route: 048
  10. QUETIAPINE FUMARATE [Suspect]
     Active Substance: QUETIAPINE FUMARATE
     Indication: Generalised anxiety disorder
     Dosage: UNK (LATER, DRUG WAS RE-STARTED.)
     Route: 065
  11. SULPIRIDE [Suspect]
     Active Substance: SULPIRIDE
     Indication: Generalised anxiety disorder
     Dosage: UNK
     Route: 065
  12. VENLAFAXINE [Suspect]
     Active Substance: VENLAFAXINE HYDROCHLORIDE
     Indication: Generalised anxiety disorder
     Dosage: UNK
     Route: 065
  13. TRAZODONE [Concomitant]
     Active Substance: TRAZODONE HYDROCHLORIDE
     Indication: Generalised anxiety disorder
     Dosage: 100 MG, QD
     Route: 065

REACTIONS (6)
  - Toxicity to various agents [Unknown]
  - Drug ineffective [Unknown]
  - Drug abuse [Unknown]
  - Drug dependence [Unknown]
  - Intentional product misuse [Unknown]
  - Overdose [Unknown]
